FAERS Safety Report 5837703-8 (Version None)
Quarter: 2008Q3

REPORT INFORMATION
  Report Type: 
  Country: None (occurrence: None)
  Receive Date: 20080731
  Receipt Date: 20080617
  Transmission Date: 20090109
  Serious: No
  Sender: FDA-Public Use
  Company Number: US200806003740

PATIENT
  Age: 59 Year
  Sex: Female

DRUGS (5)
  1. BYETTA [Suspect]
     Indication: TYPE 2 DIABETES MELLITUS
     Dosage: 5 UG, SUBCUTANEOUS
     Route: 058
     Dates: start: 20080616
  2. EXENATIDE PEN, DISPOSABLE DEVICE (EXENATDIE PEN) PEN,DISPOSABLE [Concomitant]
  3. METFORMIN HCL [Concomitant]
  4. DIOVAN [Concomitant]
  5. GEODON (ZIPRASIDONE HYDROCHLORIDE) [Concomitant]

REACTIONS (4)
  - HEADACHE [None]
  - NAUSEA [None]
  - SENSATION OF FOREIGN BODY [None]
  - VOMITING [None]
